FAERS Safety Report 8889289 (Version 2)
Quarter: 2012Q4

REPORT INFORMATION
  Report Type: 
  Country: CA (occurrence: CA)
  Receive Date: 20121106
  Receipt Date: 20121109
  Transmission Date: 20130627
  Serious: Yes (Congenital Anomaly, Other)
  Sender: FDA-Public Use
  Company Number: CA-PFIZER INC-2012268072

PATIENT
  Sex: Female

DRUGS (8)
  1. LYRICA [Suspect]
     Dosage: 150 mg, 2x/day
     Route: 064
  2. TRAMADOL HYDRCHLORIDE [Suspect]
     Dosage: 150 mg, 1x/day
     Route: 064
  3. CESAMET [Suspect]
     Dosage: 0.5 mg, 1x/day
     Route: 064
  4. CLONIDINE [Suspect]
     Dosage: 0.2 mg, 2x/day
     Route: 064
  5. SYNTHROID [Concomitant]
     Dosage: UNK
     Route: 064
  6. HYDROXYZINE [Concomitant]
     Dosage: 50 mg, 1x/day
     Route: 064
  7. MATERNA 1.60 [Concomitant]
     Dosage: 1 tablet daily
     Route: 064
  8. MULTIVITAMINS [Concomitant]
     Dosage: UNK
     Route: 064

REACTIONS (3)
  - Maternal exposure timing unspecified [Recovered/Resolved with Sequelae]
  - Spina bifida [Recovered/Resolved with Sequelae]
  - Lipoma [Recovered/Resolved with Sequelae]
